FAERS Safety Report 5969549-4 (Version None)
Quarter: 2008Q4

REPORT INFORMATION
  Report Type: 
  Country: None (occurrence: None)
  Receive Date: 20081126
  Receipt Date: 20081118
  Transmission Date: 20090506
  Serious: Yes (Other)
  Sender: FDA-Public Use
  Company Number: US-PFIZER INC-2008073211

PATIENT
  Sex: Female
  Weight: 55.3 kg

DRUGS (7)
  1. LYRICA [Suspect]
     Indication: FIBROMYALGIA
     Dosage: DAILY DOSE:300MG
     Route: 048
     Dates: start: 20080617
  2. HYDROCODONE BITARTRATE [Concomitant]
  3. FOLIC ACID [Concomitant]
  4. ALPRAZOLAM [Concomitant]
  5. PROVIGIL [Concomitant]
  6. XANAX [Concomitant]
  7. NORCO [Concomitant]

REACTIONS (4)
  - COLOUR BLINDNESS [None]
  - FEELING ABNORMAL [None]
  - SCOTOMA [None]
  - VISION BLURRED [None]
